FAERS Safety Report 8007485 (Version 2)
Quarter: 2013Q2

REPORT INFORMATION
  Report Type: Spontaneous
  Country: US (occurrence: None)
  Receive Date: 20110524
  Receipt Date: 20120621
  Transmission Date: 20140414
  Serious: Yes (Hospitalization)
  Sender: FDA-Public Use
  Company Number: 028207

PATIENT
  Age: 54 Year
  Sex: Male

DRUGS (20)
  1. CIMZIA [Suspect]
     Indication: CROHN^S DISEASE
     Dosage: (SUBCUTANEOUS)
     Route: 058
     Dates: start: 20101018
  2. AZASAN [Suspect]
     Dates: end: 20110307
  3. METOPROLOL TARTRATE [Concomitant]
  4. ENALAPRIL MALEATE [Concomitant]
  5. CARBAMAZEPINE [Concomitant]
  6. HYDROCHLOROTHIAZIDE [Concomitant]
  7. CLONIDINE HCL [Concomitant]
  8. SIMVASTATIN [Concomitant]
  9. TERAZOSIN [Concomitant]
  10. NORCO [Concomitant]
  11. PROMETHAZINE [Concomitant]
  12. AMLODIPINE BESYLATE [Concomitant]
  13. ZANTAC /00550802/ [Concomitant]
  14. POTASSIUM CHLORIDE [Concomitant]
  15. PENTASA [Concomitant]
  16. LANTUS [Concomitant]
  17. HUMALOG /01293501/ [Concomitant]
  18. CLINDAMYCIN [Concomitant]
  19. AMOXICILLIN [Concomitant]
  20. ASACOL [Concomitant]

REACTIONS (4)
  - Infection [None]
  - TOOTH EXTRACTION [None]
  - SWELLING [None]
  - Crohn^s disease [None]
